FAERS Safety Report 22005847 (Version 1)
Quarter: 2023Q1

REPORT INFORMATION
  Report Type: Spontaneous
  Country: US (occurrence: None)
  Receive Date: 20230216
  Receipt Date: 20230216
  Transmission Date: 20230417
  Serious: Yes (Hospitalization)
  Sender: FDA-Public Use
  Company Number: None

PATIENT
  Sex: Female

DRUGS (1)
  1. AMBRISENTAN [Suspect]
     Active Substance: AMBRISENTAN
     Indication: Pulmonary arterial hypertension
     Dosage: 10 MG ONCE DAILY ORAL
     Route: 048
     Dates: start: 202111

REACTIONS (4)
  - Oropharyngeal pain [None]
  - Haemoptysis [None]
  - Food poisoning [None]
  - Refusal of treatment by patient [None]
